FAERS Safety Report 7087256-4 (Version None)
Quarter: 2010Q4

REPORT INFORMATION
  Report Type: 
  Country: None (occurrence: None)
  Receive Date: 20101107
  Receipt Date: 20101028
  Transmission Date: 20110411
  Serious: Yes (Hospitalization)
  Sender: FDA-Public Use
  Company Number: FR-BRISTOL-MYERS SQUIBB COMPANY-15368400

PATIENT
  Age: 60 Year
  Sex: Female

DRUGS (4)
  1. ERBITUX [Suspect]
     Indication: RECTAL CANCER
     Dosage: 600MG DAY 2,370MG DAY 8
     Route: 042
     Dates: start: 20100929, end: 20101007
  2. OXALIPLATIN [Concomitant]
     Indication: RECTAL CANCER
     Dosage: DF=CURES, AT THE END OF AUG-2010 / BEGINNING OF SEP-2010
  3. FLUOROURACIL [Concomitant]
     Indication: RECTAL CANCER
     Dosage: DF=CURES, AT THE END OF AUG-2010 / BEGINNING OF SEP-2010
  4. FOLINIC ACID [Concomitant]
     Indication: RECTAL CANCER
     Dosage: DF=CURES, AT THE END OF AUG-2010 / BEGINNING OF SEP-2010

REACTIONS (1)
  - ANAESTHESIA [None]
